FAERS Safety Report 18661690 (Version 4)
Quarter: 2021Q1

REPORT INFORMATION
  Report Type: Report from Study
  Country: US (occurrence: US)
  Receive Date: 20201224
  Receipt Date: 20210210
  Transmission Date: 20210419
  Serious: Yes (Other)
  Sender: FDA-Public Use
  Company Number: US-GLAXOSMITHKLINE-US2020AMR249307

PATIENT
  Age: 42 Year
  Sex: Male

DRUGS (5)
  1. ASPIR 81 [Concomitant]
     Active Substance: ASPIRIN
     Indication: PRODUCT USED FOR UNKNOWN INDICATION
     Dosage: UNK
  2. ACYCLOVIR. [Concomitant]
     Active Substance: ACYCLOVIR
     Indication: PRODUCT USED FOR UNKNOWN INDICATION
     Dosage: UNK
  3. GABAPENTIN CAPSULES [Concomitant]
     Active Substance: GABAPENTIN
     Indication: PRODUCT USED FOR UNKNOWN INDICATION
     Dosage: UNK
  4. BELANTAMAB MAFODOTIN. [Suspect]
     Active Substance: BELANTAMAB MAFODOTIN
     Indication: PRODUCT USED FOR UNKNOWN INDICATION
     Dosage: UNK
  5. DEXAMETHASONE. [Concomitant]
     Active Substance: DEXAMETHASONE
     Indication: PRODUCT USED FOR UNKNOWN INDICATION
     Dosage: UNK

REACTIONS (10)
  - Cataract [Unknown]
  - Punctate keratitis [Unknown]
  - Cataract nuclear [Unknown]
  - Photophobia [Unknown]
  - Keratopathy [Unknown]
  - Plasma cell myeloma [Unknown]
  - Condition aggravated [Unknown]
  - Schirmer^s test abnormal [Unknown]
  - Visual acuity reduced [Unknown]
  - Dry eye [Unknown]

NARRATIVE: CASE EVENT DATE: 20201215
